FAERS Safety Report 7540305-9 (Version None)
Quarter: 2011Q2

REPORT INFORMATION
  Report Type: 
  Country: None (occurrence: None)
  Receive Date: 20110610
  Receipt Date: 20110606
  Transmission Date: 20111010
  Serious: Yes (Life-Threatening)
  Sender: FDA-Public Use
  Company Number: FR-ASTRAZENECA-2011SE34652

PATIENT
  Age: 74 Year
  Sex: Male

DRUGS (4)
  1. DIPRIVAN [Suspect]
     Indication: ANAESTHESIA
     Route: 042
     Dates: start: 20110525, end: 20110525
  2. CELOCURINE [Suspect]
     Indication: ANAESTHESIA
     Route: 042
     Dates: start: 20110525, end: 20110525
  3. ULTIVA [Suspect]
     Indication: ANAESTHESIA
     Dosage: 0.25 MICROG/KG/MIN ONCE/SINGLE ADMINISTRATION
     Route: 042
     Dates: start: 20110525, end: 20110525
  4. CONVERTING ENZYME INHIBITOR DRUG [Concomitant]
     Indication: HYPERTENSION
     Route: 048
     Dates: end: 20110524

REACTIONS (1)
  - ANAPHYLACTIC SHOCK [None]
